FAERS Safety Report 11599275 (Version 20)
Quarter: 2018Q3

REPORT INFORMATION
  Report Type: Report from Study
  Country: US (occurrence: US)
  Receive Date: 20151006
  Receipt Date: 20180809
  Transmission Date: 20181010
  Serious: Yes (Life-Threatening, Hospitalization, Other)
  Sender: FDA-Public Use
  Company Number: US-ACTELION-A-NJ2015-124867

PATIENT
  Age: 44 Year
  Sex: Female
  Weight: 65.31 kg

DRUGS (24)
  1. LASIX [Suspect]
     Active Substance: FUROSEMIDE
     Dosage: 40 MG, BID
     Route: 048
  2. XIFAXAN [Concomitant]
     Active Substance: RIFAXIMIN
     Dosage: 550 MG, UNK
  3. DABIGATRAN [Concomitant]
     Active Substance: DABIGATRAN
     Dosage: 150 MG, BID
     Route: 048
  4. CEPHULAC [Concomitant]
     Active Substance: LACTULOSE
     Dosage: UNK, 10 GM/ML
  5. ZANTAC [Concomitant]
     Active Substance: RANITIDINE HYDROCHLORIDE
     Dosage: 300 MG, UNK
  6. FOLIC ACID. [Concomitant]
     Active Substance: FOLIC ACID
     Dosage: 1 MG, QD
     Route: 048
  7. PRILOSEC [Concomitant]
     Active Substance: OMEPRAZOLE MAGNESIUM
     Dosage: 40 MG, UNK
  8. OXYCODONE [Concomitant]
     Active Substance: OXYCODONE
     Dosage: 30 MG, UNK
  9. RIFAXIMIN. [Concomitant]
     Active Substance: RIFAXIMIN
  10. MYCOPHENOLATE MOFETIL. [Concomitant]
     Active Substance: MYCOPHENOLATE MOFETIL
     Dosage: 250 MG, UNK
  11. OPSUMIT [Suspect]
     Active Substance: MACITENTAN
     Indication: PULMONARY ARTERIAL HYPERTENSION
     Dosage: 10 MG, QD
     Route: 048
     Dates: start: 20140801
  12. LASIX [Suspect]
     Active Substance: FUROSEMIDE
     Indication: OEDEMA PERIPHERAL
     Dosage: 80 MG, BID
     Route: 048
  13. REVATIO [Concomitant]
     Active Substance: SILDENAFIL CITRATE
     Dosage: 20 MG, TID
     Route: 048
  14. DOLOPHINE [Concomitant]
     Active Substance: METHADONE HYDROCHLORIDE
     Dosage: 10 MG, UNK
  15. ACTIGALL [Concomitant]
     Active Substance: URSODIOL
     Dosage: 300 MG, BID
     Route: 048
  16. LASIX [Suspect]
     Active Substance: FUROSEMIDE
     Dosage: 60 MG, BID
     Route: 048
  17. ASPIRIN. [Concomitant]
     Active Substance: ASPIRIN
  18. XARELTO [Concomitant]
     Active Substance: RIVAROXABAN
     Dosage: 20 MG, UNK
  19. LACTULOSE. [Concomitant]
     Active Substance: LACTULOSE
  20. ENOXAPARIN [Concomitant]
     Active Substance: ENOXAPARIN
     Dosage: UNK
     Dates: start: 20160417
  21. METOLAZONE. [Suspect]
     Active Substance: METOLAZONE
     Indication: OEDEMA PERIPHERAL
     Dosage: 2.5 MG, QD
     Route: 048
  22. OXYGEN. [Concomitant]
     Active Substance: OXYGEN
     Dosage: 1 L, UNK AT NIGHT
  23. ALDACTONE [Concomitant]
     Active Substance: SPIRONOLACTONE
     Dosage: 50 MG, UNK
  24. CHOLECALCIFEROL [Concomitant]
     Active Substance: CHOLECALCIFEROL
     Dosage: 1000 U, QD
     Route: 048

REACTIONS (31)
  - Hypervolaemia [Recovered/Resolved]
  - Anaemia [Unknown]
  - Varices oesophageal [Recovered/Resolved]
  - Atelectasis [Unknown]
  - Portal hypertensive gastropathy [Unknown]
  - Skin ulcer [Unknown]
  - Gastrointestinal haemorrhage [Recovered/Resolved with Sequelae]
  - Oxygen therapy [Unknown]
  - Dizziness [Recovered/Resolved with Sequelae]
  - Melaena [Recovered/Resolved with Sequelae]
  - Gastric polyps [Unknown]
  - Back pain [Recovered/Resolved]
  - Hepatic encephalopathy [Unknown]
  - Acute kidney injury [Unknown]
  - Transfusion [Unknown]
  - Confusional state [Unknown]
  - Swelling [Unknown]
  - Occult blood positive [Recovered/Resolved with Sequelae]
  - Wound infection pseudomonas [Unknown]
  - Blood bilirubin increased [Unknown]
  - Rhinitis [Unknown]
  - Haemorrhage [Unknown]
  - Pneumonia [Unknown]
  - Pulmonary oedema [Unknown]
  - Gastrointestinal erosion [Unknown]
  - Haemoglobin decreased [Recovered/Resolved with Sequelae]
  - Respiratory failure [Recovered/Resolved]
  - Crying [Unknown]
  - Surgery [Unknown]
  - Fatigue [Recovered/Resolved with Sequelae]
  - Oedema peripheral [Unknown]

NARRATIVE: CASE EVENT DATE: 2014
